FAERS Safety Report 9168748 (Version 1)
Quarter: 2013Q1

REPORT INFORMATION
  Report Type: Report from Study
  Country: CA (occurrence: CA)
  Receive Date: 20130318
  Receipt Date: 20130318
  Transmission Date: 20140127
  Serious: Yes (Hospitalization)
  Sender: FDA-Public Use
  Company Number: CA-JNJFOC-20130305979

PATIENT
  Age: 43 Year
  Sex: Female
  Weight: 55.5 kg

DRUGS (4)
  1. REMICADE [Suspect]
     Indication: COLITIS ULCERATIVE
     Dosage: 10MG/KG
     Route: 042
     Dates: start: 20121206
  2. REMICADE [Suspect]
     Indication: COLITIS ULCERATIVE
     Dosage: 10MG/KG
     Route: 042
     Dates: start: 20120913
  3. REMICADE [Suspect]
     Indication: COLITIS ULCERATIVE
     Dosage: 10MG/KG
     Route: 042
     Dates: start: 20130114, end: 20130114
  4. PREDNISONE [Concomitant]
     Dosage: WITH DECREASING DOSE
     Route: 048

REACTIONS (1)
  - Colectomy [Recovered/Resolved]
